FAERS Safety Report 14174743 (Version 4)
Quarter: 2017Q4

REPORT INFORMATION
  Report Type: Report from Study
  Country: ES (occurrence: ES)
  Receive Date: 20171109
  Receipt Date: 20171227
  Transmission Date: 20180321
  Serious: Yes (Death, Hospitalization)
  Sender: FDA-Public Use
  Company Number: ES-PFIZER INC-2017478514

PATIENT
  Age: 69 Year
  Sex: Male
  Weight: 65 kg

DRUGS (12)
  1. METHYLPREDNISOLONE. [Concomitant]
     Active Substance: METHYLPREDNISOLONE
     Dosage: 20 MG, UNK
     Route: 042
     Dates: start: 20171028, end: 20171031
  2. DEXKETOPROFEN [Concomitant]
     Active Substance: DEXKETOPROFEN
     Dosage: 50 MG, UNK
     Route: 042
     Dates: start: 20171022, end: 20171102
  3. BEMIPARIN [Concomitant]
     Dosage: 7500 IU, UNK
     Route: 058
     Dates: start: 20171024, end: 20171024
  4. LEVOFLOXACIN. [Concomitant]
     Active Substance: LEVOFLOXACIN
     Dosage: 500 MG, UNK
     Dates: start: 20171029, end: 20171031
  5. ACETYLCYSTEINE. [Concomitant]
     Active Substance: ACETYLCYSTEINE
     Dosage: 20 MG, UNK
     Route: 042
     Dates: start: 20171028, end: 20171102
  6. ALBUMIN [Concomitant]
     Active Substance: ALBUMIN HUMAN
     Dosage: 50 ML, UNK
     Route: 042
     Dates: start: 20171027, end: 20171102
  7. BROMAZEPAM [Concomitant]
     Active Substance: BROMAZEPAM
     Dosage: 1.5 MG, UNK
     Route: 048
     Dates: start: 20171021, end: 20171102
  8. IPRATROPIUM [Concomitant]
     Active Substance: IPRATROPIUM
     Dosage: INHALATION
     Route: 045
     Dates: start: 20171024, end: 20171102
  9. FUROSEMIDE. [Concomitant]
     Active Substance: FUROSEMIDE
     Dosage: 20 MG, UNK
     Route: 042
     Dates: start: 20171026, end: 20171102
  10. DALTEPARIN SODIUM [Suspect]
     Active Substance: DALTEPARIN SODIUM
     Indication: PULMONARY EMBOLISM
     Dosage: 15000 IU, UNK
     Route: 058
     Dates: start: 20171025
  11. MEROPENEM. [Concomitant]
     Active Substance: MEROPENEM
     Dosage: 1 G, UNK
     Route: 042
     Dates: start: 20171026, end: 20171102
  12. CODEINE [Concomitant]
     Active Substance: CODEINE
     Dosage: 1 DF, UNK
     Route: 048
     Dates: start: 20171028, end: 20171102

REACTIONS (1)
  - Respiratory failure [Fatal]

NARRATIVE: CASE EVENT DATE: 20171031
